FAERS Safety Report 4468387-1 (Version None)
Quarter: 2004Q4

REPORT INFORMATION
  Report Type: 
  Country: None (occurrence: None)
  Receive Date: 20041007
  Receipt Date: 20040929
  Transmission Date: 20050328
  Serious: Yes (Hospitalization)
  Sender: FDA-Public Use
  Company Number: GB-GLAXOSMITHKLINE-B0346715A

PATIENT
  Age: 49 Year
  Sex: Female

DRUGS (3)
  1. AMOXICILLIN [Suspect]
     Indication: SINUSITIS
     Route: 048
     Dates: start: 20040914, end: 20040914
  2. BECLOMETHASONE DIPROPIONATE [Concomitant]
     Dosage: 2U UNKNOWN
     Route: 065
  3. ALBUTEROL [Concomitant]
     Dosage: 2U UNKNOWN
     Route: 065

REACTIONS (3)
  - OROPHARYNGEAL SWELLING [None]
  - RASH [None]
  - SWOLLEN TONGUE [None]
